FAERS Safety Report 9871090 (Version 2)
Quarter: 2014Q1

REPORT INFORMATION
  Report Type: Spontaneous
  Country: US (occurrence: US)
  Receive Date: 20140205
  Receipt Date: 20140205
  Transmission Date: 20141002
  Serious: Yes (Other)
  Sender: FDA-Public Use
  Company Number: US-GILEAD-2013-0071960

PATIENT
  Sex: Male

DRUGS (3)
  1. STRIBILD [Suspect]
     Indication: HIV INFECTION
  2. VALCYTE [Concomitant]
     Indication: CYTOMEGALOVIRUS CHORIORETINITIS
     Dosage: 900 MG, UNK
     Dates: start: 20121021
  3. BACTRIM DS [Concomitant]
     Indication: PNEUMOCYSTIS JIROVECII PNEUMONIA
     Dosage: 1 DF, QD
     Route: 048
     Dates: start: 20121021

REACTIONS (3)
  - Pathogen resistance [Recovering/Resolving]
  - Viral mutation identified [Unknown]
  - Viral mutation identified [Unknown]
